FAERS Safety Report 13062659 (Version 2)
Quarter: 2017Q1

REPORT INFORMATION
  Report Type: Report from Study
  Country: FR (occurrence: FR)
  Receive Date: 20161226
  Receipt Date: 20170305
  Transmission Date: 20170428
  Serious: Yes (Other)
  Sender: FDA-Public Use
  Company Number: FR-BEH-2016076467

PATIENT
  Age: 53 Year
  Sex: Male
  Weight: 77 kg

DRUGS (4)
  1. RIVOTRIL [Concomitant]
     Active Substance: CLONAZEPAM
     Dosage: 10 DROPS
     Route: 048
     Dates: start: 2014
  2. SKENAN [Concomitant]
     Active Substance: MORPHINE SULFATE
     Indication: PAIN
     Dosage: 30 MG, UNK
     Route: 065
     Dates: start: 2014
  3. PRIVIGEN [Suspect]
     Active Substance: HUMAN IMMUNOGLOBULIN G
     Indication: PARANEOPLASTIC NEUROLOGICAL SYNDROME
     Dosage: 150 G, QW
     Route: 042
     Dates: start: 20140409, end: 20140411
  4. PRIVIGEN [Suspect]
     Active Substance: HUMAN IMMUNOGLOBULIN G
     Dosage: 150 G, QW
     Route: 042
     Dates: start: 20140513, end: 20140513

REACTIONS (1)
  - Drug eruption [Recovered/Resolved]

NARRATIVE: CASE EVENT DATE: 20140513
